FAERS Safety Report 25344800 (Version 1)
Quarter: 2025Q2

REPORT INFORMATION
  Report Type: Spontaneous
  Country: NL (occurrence: NL)
  Receive Date: 20250522
  Receipt Date: 20250522
  Transmission Date: 20250717
  Serious: Yes (Other)
  Sender: TEVA
  Company Number: None

PATIENT
  Age: 65 Year
  Sex: Female
  Weight: 66 kg

DRUGS (1)
  1. SIMVASTATIN [Suspect]
     Active Substance: SIMVASTATIN
     Indication: Hypercholesterolaemia
     Dosage: 1 TABLET ONCE A DAY, TABLET FO / BRAND NAME NOT SPECIFIED
     Route: 048
     Dates: start: 20241004, end: 20250415

REACTIONS (5)
  - Muscle rupture [Recovered/Resolved]
  - Nightmare [Recovered/Resolved]
  - Abnormal dreams [Recovered/Resolved]
  - Dyssomnia [Recovered/Resolved]
  - Myalgia [Recovered/Resolved]
